FAERS Safety Report 6203420-8 (Version None)
Quarter: 2009Q2

REPORT INFORMATION
  Report Type: 
  Country: None (occurrence: None)
  Receive Date: 20090527
  Receipt Date: 20090515
  Transmission Date: 20091009
  Serious: Yes (Hospitalization)
  Sender: FDA-Public Use
  Company Number: US-BIOGENIDEC-2008BI034655

PATIENT
  Sex: Female

DRUGS (7)
  1. TYSABRI [Suspect]
     Indication: MULTIPLE SCLEROSIS
     Route: 042
     Dates: start: 20080317
  2. ALPRAZOLAM [Concomitant]
  3. RANITIDINE [Concomitant]
  4. OXYCODONE HCL [Concomitant]
  5. PAXIL [Concomitant]
  6. BACLOFEN [Concomitant]
  7. VITAMIN D [Concomitant]

REACTIONS (6)
  - DRUG INEFFECTIVE [None]
  - DYSSTASIA [None]
  - INTERVERTEBRAL DISC DEGENERATION [None]
  - INTERVERTEBRAL DISC PROTRUSION [None]
  - MEMORY IMPAIRMENT [None]
  - PAIN [None]
